FAERS Safety Report 7957880-2 (Version None)
Quarter: 2011Q4

REPORT INFORMATION
  Report Type: 
  Country: None (occurrence: None)
  Receive Date: 20111201
  Receipt Date: 20111117
  Transmission Date: 20120403
  Serious: Yes (Death, Life-Threatening, Hospitalization)
  Sender: FDA-Public Use
  Company Number: 1000021391

PATIENT
  Age: 81 Year
  Sex: Female
  Weight: 49 kg

DRUGS (12)
  1. SPIRIVA (TIOTROPIUM) (TIOTROPIUM) [Concomitant]
  2. CALCILAC (CALCIUM LACTATE)(CALCIUM LACTATE) [Concomitant]
  3. ROFLUMILAST (ROFLUMILAST) (TABLETS) [Suspect]
     Indication: CHRONIC OBSTRUCTIVE PULMONARY DISEASE
     Dosage: 500 MG (1 IN 1 D),ORAL
     Route: 048
     Dates: start: 20110310, end: 20110430
  4. ASS (ACETYLSALICYLIC ACID)(ACETYLSALICYLIC ACID) [Concomitant]
  5. LANTUS (INSULIN GLARGINE)(INSULIN GLARGINE) [Concomitant]
  6. PANTOZOL (PANTOPRAZOLE SODIUM SESQUIHYDRATE)(PANTOPRAZOLE SODIUM SESQU [Concomitant]
  7. VERAPAMIL [Concomitant]
  8. PROTELOS (STRONTIUM RANELATE)(STRONTIUM RANELATE) [Concomitant]
  9. METOCLOPRAMID (METOCLOPRAMIDE)(METOCLOPRAMIDE) [Concomitant]
  10. TARGIN (TARGIN)(TARGIN) [Concomitant]
  11. PREDNISOLONE [Concomitant]
  12. ALBUTEROL [Concomitant]

REACTIONS (3)
  - PNEUMONIA [None]
  - SYSTEMIC INFLAMMATORY RESPONSE SYNDROME [None]
  - TACHYARRHYTHMIA [None]
